FAERS Safety Report 12988504 (Version 14)
Quarter: 2018Q2

REPORT INFORMATION
  Report Type: Report from Study
  Country: US (occurrence: US)
  Receive Date: 20161130
  Receipt Date: 20180524
  Transmission Date: 20180711
  Serious: Yes (Hospitalization, Other)
  Sender: FDA-Public Use
  Company Number: US-ACTELION-A-US2015-121451

PATIENT
  Age: 56 Year
  Sex: Female
  Weight: 126.8 kg

DRUGS (10)
  1. VELETRI [Suspect]
     Active Substance: EPOPROSTENOL
     Dosage: 5.5 NG/KG, PER MIN
     Route: 042
  2. REMODULIN [Concomitant]
     Active Substance: TREPROSTINIL
  3. VELETRI [Suspect]
     Active Substance: EPOPROSTENOL
     Indication: PULMONARY ARTERIAL HYPERTENSION
     Dosage: 10.5 NG/KG, PER MIN
     Route: 042
     Dates: start: 20150716
  4. VELETRI [Suspect]
     Active Substance: EPOPROSTENOL
     Dosage: UNK
     Route: 042
  5. COUMADIN [Concomitant]
     Active Substance: WARFARIN SODIUM
  6. VELETRI [Suspect]
     Active Substance: EPOPROSTENOL
     Dosage: 8 NG/KG, PER MIN
     Route: 042
  7. REVATIO [Concomitant]
     Active Substance: SILDENAFIL CITRATE
  8. LETAIRIS [Concomitant]
     Active Substance: AMBRISENTAN
  9. OXYGEN. [Concomitant]
     Active Substance: OXYGEN
  10. VELETRI [Suspect]
     Active Substance: EPOPROSTENOL
     Dosage: 22 NG/KG, PER MIN
     Route: 042
     Dates: start: 20150716

REACTIONS (39)
  - Hypotension [Unknown]
  - Dizziness [Unknown]
  - Musculoskeletal discomfort [Unknown]
  - Nausea [Unknown]
  - Chest discomfort [Unknown]
  - Rhinovirus infection [Unknown]
  - Dyspnoea exertional [Unknown]
  - Vomiting [Unknown]
  - Chest pain [Unknown]
  - Pain in extremity [Unknown]
  - Pulse abnormal [Unknown]
  - Cough [Unknown]
  - Abdominal discomfort [Not Recovered/Not Resolved]
  - Nasopharyngitis [Unknown]
  - Insomnia [Unknown]
  - Wheezing [Not Recovered/Not Resolved]
  - Drug dose omission [Unknown]
  - Dehydration [Unknown]
  - Headache [Unknown]
  - Dyspnoea [Unknown]
  - Application site hypersensitivity [Unknown]
  - Catheter site erythema [Unknown]
  - Fluid retention [Unknown]
  - Cardiac failure [Unknown]
  - Catheter site pruritus [Unknown]
  - Restless legs syndrome [Unknown]
  - Malaise [Unknown]
  - Viral infection [Unknown]
  - Feeling abnormal [Unknown]
  - Neck pain [Unknown]
  - Diarrhoea [Unknown]
  - Flushing [Unknown]
  - Application site erosion [Unknown]
  - Catheter site rash [Unknown]
  - Pain in jaw [Unknown]
  - Oedema peripheral [Unknown]
  - Device use error [Unknown]
  - Abdominal pain [Unknown]
  - Sensitivity to weather change [Unknown]

NARRATIVE: CASE EVENT DATE: 201705
